FAERS Safety Report 8405081-6 (Version None)
Quarter: 2012Q2

REPORT INFORMATION
  Report Type: 
  Country: None (occurrence: None)
  Receive Date: 20120601
  Receipt Date: 20120418
  Transmission Date: 20120825
  Serious: Yes (Other)
  Sender: FDA-Public Use
  Company Number: CHPA2012US010476

PATIENT
  Age: 78 Year
  Sex: Female

DRUGS (3)
  1. CHOLESTEROL- AND TRIGLYCERIDE REDUCERS [Concomitant]
     Dosage: UNK, UNK
  2. BENEFIBER W/ WHEAT DEXTRIN [Suspect]
     Indication: BOWEL MOVEMENT IRREGULARITY
     Dosage: 1 TSP, QD
     Route: 048
  3. ANTIHYPERTENSIVES [Concomitant]
     Dosage: UNK, UNK

REACTIONS (11)
  - CHEST PAIN [None]
  - DYSPNOEA [None]
  - ARTHRALGIA [None]
  - GAIT DISTURBANCE [None]
  - MALAISE [None]
  - BACK PAIN [None]
  - OFF LABEL USE [None]
  - UNDERDOSE [None]
  - PAIN [None]
  - PAIN IN EXTREMITY [None]
  - PAINFUL RESPIRATION [None]
